FAERS Safety Report 5677320-6 (Version None)
Quarter: 2008Q1

REPORT INFORMATION
  Report Type: 
  Country: None (occurrence: None)
  Receive Date: 20080324
  Receipt Date: 20080312
  Transmission Date: 20080703
  Serious: Yes (Hospitalization, Other)
  Sender: FDA-Public Use
  Company Number: US-MERCK-0601USA02836

PATIENT
  Age: 62 Year
  Sex: Female
  Weight: 65 kg

DRUGS (4)
  1. FOSAMAX [Suspect]
     Indication: OSTEOPENIA
     Route: 048
     Dates: start: 20010507
  2. PREMARIN [Concomitant]
     Route: 048
     Dates: start: 19990101, end: 20010601
  3. CALCIUM (UNSPECIFIED) [Concomitant]
     Route: 065
  4. PROVERA [Concomitant]
     Route: 065

REACTIONS (36)
  - ARTHRALGIA [None]
  - ATROPHY [None]
  - BACTERAEMIA [None]
  - BLOOD CULTURE POSITIVE [None]
  - BONE LESION [None]
  - BONE MARROW OEDEMA [None]
  - BREAST CANCER METASTATIC [None]
  - COLLAPSE OF LUNG [None]
  - CONJUNCTIVAL HAEMORRHAGE [None]
  - DEEP VEIN THROMBOSIS [None]
  - DEPRESSION [None]
  - DIARRHOEA [None]
  - FATIGUE [None]
  - GASTROINTESTINAL HAEMORRHAGE [None]
  - HEAD INJURY [None]
  - HEADACHE [None]
  - HERPES ZOSTER [None]
  - HYPERTROPHY [None]
  - INITIAL INSOMNIA [None]
  - INTERVERTEBRAL DISC DEGENERATION [None]
  - INTERVERTEBRAL DISCITIS [None]
  - NECK PAIN [None]
  - OSTEOMYELITIS [None]
  - OSTEONECROSIS [None]
  - OSTEOPOROSIS [None]
  - PAIN IN EXTREMITY [None]
  - PNEUMOTHORAX [None]
  - RECTAL HAEMORRHAGE [None]
  - SPINAL COLUMN STENOSIS [None]
  - SPINAL FRACTURE [None]
  - SPINAL OSTEOARTHRITIS [None]
  - STAPHYLOCOCCAL INFECTION [None]
  - SYNCOPE [None]
  - TENDON INJURY [None]
  - TOOTH EXTRACTION [None]
  - TRANSFUSION REACTION [None]
